FAERS Safety Report 8424106-5 (Version None)
Quarter: 2012Q2

REPORT INFORMATION
  Report Type: 
  Country: None (occurrence: None)
  Receive Date: 20120608
  Receipt Date: 20110509
  Transmission Date: 20120825
  Serious: No
  Sender: FDA-Public Use
  Company Number: US-ASTRAZENECA-2011SE27998

PATIENT
  Sex: Male

DRUGS (2)
  1. BROVANA [Suspect]
     Route: 065
  2. PULMICORT [Suspect]
     Route: 055

REACTIONS (4)
  - DYSPNOEA [None]
  - WRONG TECHNIQUE IN DRUG USAGE PROCESS [None]
  - DRUG INEFFECTIVE [None]
  - RASH [None]
